FAERS Safety Report 17809406 (Version 1)
Quarter: 2020Q2

REPORT INFORMATION
  Report Type: Spontaneous
  Country: FR (occurrence: FR)
  Receive Date: 20200520
  Receipt Date: 20200520
  Transmission Date: 20200714
  Serious: Yes (Hospitalization)
  Sender: FDA-Public Use
  Company Number: NVSC2020FR136616

PATIENT
  Age: 9 Year
  Sex: Male
  Weight: 26 kg

DRUGS (3)
  1. ORBENINE [Suspect]
     Active Substance: CLOXACILLIN SODIUM
     Indication: OSTEOMYELITIS
     Dosage: 5200 MG
     Route: 042
     Dates: start: 20180719, end: 20180724
  2. GENTAMICINE PANPHARMA [Suspect]
     Active Substance: GENTAMICIN
     Indication: OSTEOMYELITIS
     Route: 042
     Dates: start: 20180719, end: 20180724
  3. CEFADROXIL. [Suspect]
     Active Substance: CEFADROXIL
     Indication: OSTEOMYELITIS
     Route: 048
     Dates: start: 20180725, end: 20180821

REACTIONS (1)
  - Drug reaction with eosinophilia and systemic symptoms [Recovered/Resolved]

NARRATIVE: CASE EVENT DATE: 20180817
